FAERS Safety Report 6515054-6 (Version None)
Quarter: 2009Q4

REPORT INFORMATION
  Report Type: 
  Country: None (occurrence: None)
  Receive Date: 20091223
  Receipt Date: 20091221
  Transmission Date: 20100525
  Serious: Yes (Hospitalization, Other)
  Sender: FDA-Public Use
  Company Number: US-ELI_LILLY_AND_COMPANY-US200911002556

PATIENT
  Sex: Male
  Weight: 86.259 kg

DRUGS (3)
  1. ALIMTA [Suspect]
     Indication: NON-SMALL CELL LUNG CANCER METASTATIC
     Dates: start: 20080801, end: 20091019
  2. VITAMIN B-12 [Concomitant]
     Indication: PREMEDICATION
  3. FOLIC ACID [Concomitant]
     Indication: PREMEDICATION

REACTIONS (4)
  - DEHYDRATION [None]
  - FATIGUE [None]
  - MALIGNANT NEOPLASM PROGRESSION [None]
  - VOMITING [None]
